FAERS Safety Report 6674346-0 (Version None)
Quarter: 2010Q2

REPORT INFORMATION
  Report Type: 
  Country: None (occurrence: None)
  Receive Date: 20100409
  Receipt Date: 20100331
  Transmission Date: 20101027
  Serious: Yes (Other)
  Sender: FDA-Public Use
  Company Number: US-JNJFOC-20100401036

PATIENT
  Age: 56 Year
  Sex: Male

DRUGS (1)
  1. LEVAQUIN [Suspect]
     Indication: STAPHYLOCOCCAL INFECTION
     Route: 048

REACTIONS (3)
  - LIGAMENT RUPTURE [None]
  - MUSCLE RUPTURE [None]
  - ROTATOR CUFF SYNDROME [None]
